FAERS Safety Report 13134581 (Version 1)
Quarter: 2017Q1

REPORT INFORMATION
  Report Type: Spontaneous
  Country: JP (occurrence: JP)
  Receive Date: 20170120
  Receipt Date: 20170120
  Transmission Date: 20170428
  Serious: Yes (Hospitalization)
  Sender: FDA-Public Use
  Company Number: JP-PFIZER INC-2017003129

PATIENT
  Age: 63 Year
  Sex: Male
  Weight: 43.3 kg

DRUGS (7)
  1. ABILIFY [Concomitant]
     Active Substance: ARIPIPRAZOLE
     Dosage: 3 MG, 1X/DAY
     Route: 048
  2. MAGMITT [Concomitant]
     Active Substance: MAGNESIUM OXIDE
     Dosage: 330 MG, 2X/DAY
     Route: 048
  3. VALPROATE SODIUM. [Concomitant]
     Active Substance: VALPROATE SODIUM
     Dosage: 4 ML, 3X/DAY
     Route: 048
  4. GABAPEN [Suspect]
     Active Substance: GABAPENTIN
     Dosage: 200 MG, 3X/DAY
     Route: 048
     Dates: start: 201611
  5. BENZALIN [Concomitant]
     Active Substance: NITRAZEPAM
     Dosage: 0.5 G, 1X/DAY
     Route: 048
  6. GABAPEN [Suspect]
     Active Substance: GABAPENTIN
     Dosage: 200 MG, 2X/DAY
     Route: 048
     Dates: start: 20170104
  7. GABAPEN [Suspect]
     Active Substance: GABAPENTIN
     Indication: CONVULSION PROPHYLAXIS
     Dosage: UNK
     Route: 048

REACTIONS (5)
  - Delusion [Unknown]
  - Gait disturbance [Unknown]
  - Somnolence [Unknown]
  - Memory impairment [Unknown]
  - Abnormal behaviour [Unknown]

NARRATIVE: CASE EVENT DATE: 20101225
